FAERS Safety Report 8618972-8 (Version None)
Quarter: 2012Q3

REPORT INFORMATION
  Report Type: 
  Country: None (occurrence: None)
  Receive Date: 20120824
  Receipt Date: 20120820
  Transmission Date: 20120928
  Serious: Yes (Other)
  Sender: FDA-Public Use
  Company Number: PHHO2012IT012145

PATIENT
  Sex: Female
  Weight: 59 kg

DRUGS (2)
  1. TASIGNA [Suspect]
     Indication: CHRONIC MYELOID LEUKAEMIA
     Dosage: 600 MG, UNK
     Route: 048
     Dates: start: 20120514, end: 20120704
  2. TASIGNA [Suspect]
     Dosage: 450 MG, UNK
     Route: 048
     Dates: start: 20120705, end: 20120806

REACTIONS (1)
  - ELECTROCARDIOGRAM QT PROLONGED [None]
